FAERS Safety Report 16538328 (Version 19)
Quarter: 2021Q1

REPORT INFORMATION
  Report Type: Spontaneous
  Country: JP (occurrence: JP)
  Receive Date: 20190708
  Receipt Date: 20210316
  Transmission Date: 20210419
  Serious: Yes (Death, Hospitalization, Other)
  Sender: FDA-Public Use
  Company Number: JP-AMGEN-JPNSP2019107497

PATIENT
  Age: 66 Year
  Sex: Male
  Weight: 56.6 kg

DRUGS (9)
  1. OXAROL [Concomitant]
     Active Substance: MAXACALCITOL
     Dosage: 5 MUG, Q56H
     Route: 042
     Dates: start: 20200817, end: 20200831
  2. PARSABIV [Suspect]
     Active Substance: ETELCALCETIDE HYDROCHLORIDE
     Dosage: 2.5 MG, Q56H
     Route: 010
     Dates: start: 20190121, end: 20190419
  3. OXAROL [Concomitant]
     Active Substance: MAXACALCITOL
     Dosage: 5 UG, QW
     Route: 042
     Dates: start: 20200427, end: 20200810
  4. NESP [Concomitant]
     Active Substance: DARBEPOETIN ALFA
     Dosage: 80 MUG, EVERY MONTH
     Route: 065
     Dates: end: 20200831
  5. FOSRENOL [Concomitant]
     Active Substance: LANTHANUM CARBONATE
     Dosage: 1500 MG, EVERYDAY
     Route: 048
     Dates: end: 20181014
  6. OXAROL [Concomitant]
     Active Substance: MAXACALCITOL
     Dosage: 5 MUG, Q56H
     Route: 042
     Dates: end: 20200424
  7. FOSRENOL [Concomitant]
     Active Substance: LANTHANUM CARBONATE
     Dosage: 1000 MG, EVERYDAY
     Route: 048
     Dates: start: 20181015, end: 20200831
  8. PARSABIV [Suspect]
     Active Substance: ETELCALCETIDE HYDROCHLORIDE
     Indication: HYPERPARATHYROIDISM SECONDARY
     Dosage: 5 MG, Q56H
     Route: 010
     Dates: start: 20180921, end: 20190118
  9. PARSABIV [Suspect]
     Active Substance: ETELCALCETIDE HYDROCHLORIDE
     Dosage: 5 MG, Q56H
     Route: 010
     Dates: start: 20191202, end: 20200831

REACTIONS (5)
  - Shunt occlusion [Recovered/Resolved]
  - Shunt stenosis [Recovering/Resolving]
  - Shunt occlusion [Recovering/Resolving]
  - Sudden death [Fatal]
  - Shunt stenosis [Recovering/Resolving]

NARRATIVE: CASE EVENT DATE: 20190218
